FAERS Safety Report 22168266 (Version 1)
Quarter: 2023Q2

REPORT INFORMATION
  Report Type: Spontaneous
  Country: JP (occurrence: JP)
  Receive Date: 20230403
  Receipt Date: 20230403
  Transmission Date: 20230721
  Serious: Yes (Hospitalization)
  Sender: FDA-Public Use
  Company Number: JP-JNJFOC-20210924135

PATIENT
  Age: 21 Year
  Sex: Male

DRUGS (6)
  1. STELARA [Suspect]
     Active Substance: USTEKINUMAB
     Indication: Crohn^s disease
     Dosage: USTEKINUMAB (GENETICAL RECOMBINATION):130MG
     Dates: start: 201710
  2. STELARA [Suspect]
     Active Substance: USTEKINUMAB
     Dosage: USTEKINUMAB (GENETICAL RECOMBINATION):45MG
     Route: 058
     Dates: start: 2017
  3. STELARA [Suspect]
     Active Substance: USTEKINUMAB
     Dosage: USTEKINUMAB (GENETICAL RECOMBINATION):45MG
     Route: 058
     Dates: start: 20200731
  4. PREDNISOLONE [Concomitant]
     Active Substance: PREDNISOLONE
     Indication: Crohn^s disease
     Route: 065
     Dates: start: 2011
  5. PREDNISOLONE [Concomitant]
     Active Substance: PREDNISOLONE
     Route: 065
     Dates: start: 201710
  6. THIOINOSINE [Concomitant]
     Active Substance: THIOINOSINE
     Indication: Crohn^s disease
     Dosage: 6-MERCAPTOPURINE RIBOSIDE
     Route: 065
     Dates: start: 201710

REACTIONS (3)
  - Intestinal obstruction [Recovering/Resolving]
  - Small intestinal perforation [Recovering/Resolving]
  - Abdominal abscess [Recovering/Resolving]

NARRATIVE: CASE EVENT DATE: 20200601
